FAERS Safety Report 9845503 (Version 2)
Quarter: 2014Q1

REPORT INFORMATION
  Report Type: Spontaneous
  Country: US (occurrence: None)
  Receive Date: 20140123
  Receipt Date: 20140225
  Transmission Date: 20141002
  Serious: Yes (Other)
  Sender: FDA-Public Use
  Company Number: 2014P1000471

PATIENT
  Age: 65 Year
  Sex: Male

DRUGS (5)
  1. HYDROXYCHLOROQUINE [Suspect]
     Indication: RHEUMATOID ARTHRITIS
     Route: 048
  2. ATENOLOL [Concomitant]
  3. HYDROCHLOROTHIAZIDE [Concomitant]
  4. LISINOPRIL [Concomitant]
  5. TERAZOSIN [Concomitant]

REACTIONS (8)
  - Retinopathy [None]
  - Cataract [None]
  - Visual field defect [None]
  - Maculopathy [None]
  - Cataract nuclear [None]
  - Macular degeneration [None]
  - Maculopathy [None]
  - Colour vision tests abnormal [None]
